FAERS Safety Report 8462654-2 (Version None)
Quarter: 2012Q2

REPORT INFORMATION
  Report Type: 
  Country: None (occurrence: None)
  Receive Date: 20120625
  Receipt Date: 20120614
  Transmission Date: 20120825
  Serious: Yes (Hospitalization)
  Sender: FDA-Public Use
  Company Number: IE-MEDIMMUNE-MEDI-0014842

PATIENT
  Age: 253 Day
  Sex: Female
  Weight: 7.9 kg

DRUGS (1)
  1. SYNAGIS [Suspect]
     Indication: PREMATURE BABY
     Route: 030

REACTIONS (2)
  - PNEUMONIA [None]
  - RHINORRHOEA [None]
